FAERS Safety Report 19829772 (Version 1)
Quarter: 2021Q3

REPORT INFORMATION
  Report Type: Spontaneous
  Country: US (occurrence: US)
  Receive Date: 20210914
  Receipt Date: 20210914
  Transmission Date: 20211014
  Serious: Yes (Hospitalization)
  Sender: FDA-Public Use
  Company Number: None

PATIENT
  Age: 58 Year
  Sex: Female

DRUGS (1)
  1. INLYTA [Suspect]
     Active Substance: AXITINIB
     Indication: CARDIAC DISORDER
     Route: 048
     Dates: start: 20200227

REACTIONS (2)
  - Intentional dose omission [None]
  - Skin operation [None]

NARRATIVE: CASE EVENT DATE: 20210901
